FAERS Safety Report 6416730-6 (Version None)
Quarter: 2009Q4

REPORT INFORMATION
  Report Type: 
  Country: None (occurrence: None)
  Receive Date: 20091027
  Receipt Date: 20091019
  Transmission Date: 20100525
  Serious: Yes (Death, Life-Threatening, Hospitalization)
  Sender: FDA-Public Use
  Company Number: US-GENENTECH-292573

PATIENT
  Sex: Male

DRUGS (37)
  1. BEVACIZUMAB [Suspect]
     Indication: COLORECTAL CANCER METASTATIC
     Dosage: 5 MG/KG, UNK
     Route: 042
     Dates: start: 20080716
  2. IRINOTECAN HCL [Suspect]
     Indication: COLORECTAL CANCER METASTATIC
  3. FLUOROURACIL [Concomitant]
     Indication: COLORECTAL CANCER METASTATIC
     Dosage: UNK
     Route: 065
  4. FOLINIC ACID [Concomitant]
     Indication: COLORECTAL CANCER METASTATIC
     Dosage: UNK
     Route: 065
  5. CARBIDOPA-LEVODOPA [Concomitant]
     Indication: DRUG USE FOR UNKNOWN INDICATION
     Dosage: 3 UNK, UNK
     Route: 048
     Dates: start: 20010101
  6. BENZTROPINE MESYLATE [Concomitant]
     Indication: DRUG USE FOR UNKNOWN INDICATION
     Dosage: 2 MG, TID
     Route: 048
     Dates: start: 20010101, end: 20081201
  7. LISINOPRIL [Concomitant]
     Indication: DRUG USE FOR UNKNOWN INDICATION
     Dosage: 12.5 MG, BID
     Route: 048
     Dates: start: 20000101, end: 20081201
  8. CITALOPRAM HYDROBROMIDE [Concomitant]
     Indication: DRUG USE FOR UNKNOWN INDICATION
     Dosage: 20 MG, BID
     Route: 048
     Dates: start: 20060101, end: 20081201
  9. LORAZEPAM [Concomitant]
     Indication: DRUG USE FOR UNKNOWN INDICATION
     Dosage: 0.5 MG, UNK
     Route: 048
     Dates: start: 20070101, end: 20081201
  10. CALCIUM POLYCARBOPHIL [Concomitant]
     Indication: DRUG USE FOR UNKNOWN INDICATION
     Dosage: 625 MG, QD
     Route: 048
     Dates: start: 20040101, end: 20081129
  11. DOCUSATE SODIUM [Concomitant]
     Indication: DRUG USE FOR UNKNOWN INDICATION
     Dosage: UNK
     Route: 048
     Dates: start: 20040101, end: 20081129
  12. IMODIUM [Concomitant]
     Indication: DRUG USE FOR UNKNOWN INDICATION
     Dosage: 2 MG, PRN
     Route: 048
     Dates: start: 20080820, end: 20081201
  13. METOPROLOL [Concomitant]
     Indication: DRUG USE FOR UNKNOWN INDICATION
     Dosage: 50 MG, BID
     Route: 048
     Dates: start: 20040201
  14. TUMS [Concomitant]
     Indication: DRUG USE FOR UNKNOWN INDICATION
     Dosage: 400 MG, PRN
     Route: 048
     Dates: start: 20080807, end: 20081201
  15. FAMOTIDINE [Concomitant]
     Indication: DRUG USE FOR UNKNOWN INDICATION
     Dosage: 20 MG, PRN
     Route: 048
     Dates: start: 20080816, end: 20081201
  16. PROCHLORPERAZINE EDISYLATE [Concomitant]
     Indication: DRUG USE FOR UNKNOWN INDICATION
     Dosage: 10 MG, Q6H
     Route: 065
     Dates: start: 20080827, end: 20081201
  17. NEULASTA [Concomitant]
     Indication: DRUG USE FOR UNKNOWN INDICATION
     Dosage: 6 MG, Q2W
     Route: 058
     Dates: start: 20080718, end: 20081129
  18. PALONOSETRON HYDROCHLORIDE [Concomitant]
     Indication: DRUG USE FOR UNKNOWN INDICATION
     Dosage: 0.25 MG, UNK
     Route: 040
     Dates: start: 20080716
  19. PALONOSETRON HYDROCHLORIDE [Concomitant]
     Dosage: 0.25 G, UNK
     Route: 042
     Dates: start: 20080716, end: 20081124
  20. DIPHENHYDRAMINE HYDROCHLORIDE [Concomitant]
     Indication: DRUG USE FOR UNKNOWN INDICATION
     Dosage: 25 MG, UNK
     Route: 042
     Dates: start: 20080716, end: 20081124
  21. HYDROCHLOROTHIAZIDE [Concomitant]
     Indication: DRUG USE FOR UNKNOWN INDICATION
     Dosage: 25 MG, QD
     Route: 048
     Dates: start: 20050101, end: 20081004
  22. RANITIDINE HYDROCHLORIDE [Concomitant]
     Indication: DRUG USE FOR UNKNOWN INDICATION
     Dosage: 50 MG, Q2W
     Route: 042
     Dates: start: 20081015, end: 20081124
  23. LOMOTIL [Concomitant]
     Indication: DRUG USE FOR UNKNOWN INDICATION
     Dosage: 5 MG, Q6H
     Route: 048
     Dates: start: 20080927, end: 20081204
  24. ATROPINE [Concomitant]
     Indication: DRUG USE FOR UNKNOWN INDICATION
     Dosage: 0.5 MG, Q2W
     Route: 042
     Dates: start: 20081015, end: 20081124
  25. SIMVASTATIN [Concomitant]
     Indication: DRUG USE FOR UNKNOWN INDICATION
     Dosage: 40 MG, QD
     Route: 048
     Dates: start: 20000101, end: 20081204
  26. GABAPENTIN [Concomitant]
     Indication: DRUG USE FOR UNKNOWN INDICATION
     Dosage: 100 MG, TID
     Route: 048
     Dates: start: 20081118, end: 20081204
  27. PANTOPRAZOLE SODIUM [Concomitant]
     Indication: DRUG USE FOR UNKNOWN INDICATION
     Dosage: 40 MG, Q12H
     Route: 048
     Dates: start: 20081129
  28. METRONIDAZOLE [Concomitant]
     Indication: DRUG USE FOR UNKNOWN INDICATION
     Dosage: 500 MG, QD
     Route: 048
     Dates: start: 20080929, end: 20081204
  29. FLUCONAZOLE [Concomitant]
     Indication: DRUG USE FOR UNKNOWN INDICATION
     Dosage: 200 MG, QD
     Route: 048
     Dates: start: 20081130, end: 20081204
  30. LIDOCAINE HYDROCHLORIDE [Concomitant]
     Indication: DRUG USE FOR UNKNOWN INDICATION
     Dosage: UNK
     Dates: start: 20081129, end: 20081204
  31. PROMETHAZINE [Concomitant]
     Indication: DRUG USE FOR UNKNOWN INDICATION
     Dosage: 12.5 MG, PRN
     Route: 042
     Dates: start: 20081130, end: 20081201
  32. MAGNESIUM SULFATE [Concomitant]
     Indication: DRUG USE FOR UNKNOWN INDICATION
     Dosage: UNK
     Route: 042
     Dates: start: 20081201, end: 20081204
  33. MEGESTROL ACETATE [Concomitant]
     Indication: DRUG USE FOR UNKNOWN INDICATION
     Dosage: 400 MG, QD
     Route: 048
     Dates: start: 20081203, end: 20081204
  34. ONDANSETRON HYDROCHLORIDE [Concomitant]
     Indication: DRUG USE FOR UNKNOWN INDICATION
     Dosage: 4 MG, QD
     Route: 042
     Dates: start: 20081203, end: 20081204
  35. GRANULEX [Concomitant]
     Indication: DRUG USE FOR UNKNOWN INDICATION
     Dosage: 113 G, TID
     Route: 061
     Dates: start: 20081204, end: 20081204
  36. HEXACHLOROPHENE [Concomitant]
     Indication: DRUG USE FOR UNKNOWN INDICATION
     Dosage: 10 ML, BID
     Route: 061
     Dates: start: 20081204, end: 20081204
  37. METOCLOPRAMIDE [Concomitant]
     Indication: DRUG USE FOR UNKNOWN INDICATION
     Dosage: 10 MG, UNK
     Route: 042
     Dates: start: 20081204, end: 20081204

REACTIONS (1)
  - RESPIRATORY FAILURE [None]
